FAERS Safety Report 13169987 (Version 2)
Quarter: 2017Q1

REPORT INFORMATION
  Report Type: Spontaneous
  Country: HR (occurrence: HR)
  Receive Date: 20170201
  Receipt Date: 20170202
  Transmission Date: 20170428
  Serious: Yes (Hospitalization)
  Sender: FDA-Public Use
  Company Number: HR-CIPLA LTD.-2017HR01370

PATIENT

DRUGS (11)
  1. SULPIRIDE [Suspect]
     Active Substance: SULPIRIDE
     Indication: PSYCHOTHERAPY
     Dosage: UNK, LOW DOSES
     Route: 065
  2. OLANZAPINE. [Suspect]
     Active Substance: OLANZAPINE
     Indication: PSYCHOTHERAPY
     Dosage: UNK
     Route: 065
  3. CLOZAPINE. [Suspect]
     Active Substance: CLOZAPINE
     Indication: PSYCHOTHERAPY
     Dosage: UNK, LOW DOSES
     Route: 065
  4. CYCLOPHOSPHAMIDE. [Suspect]
     Active Substance: CYCLOPHOSPHAMIDE
     Indication: ENCEPHALITIS AUTOIMMUNE
     Dosage: UNK
     Route: 065
  5. FLUVOXAMINE [Suspect]
     Active Substance: FLUVOXAMINE
     Indication: PSYCHOTHERAPY
     Dosage: UNK
     Route: 065
  6. HALOPERIDOL. [Suspect]
     Active Substance: HALOPERIDOL
     Indication: PSYCHOTHERAPY
     Dosage: UNK, LOW DOSES
     Route: 065
  7. AMOXICILLIN/CLAVULANIC ACID [Suspect]
     Active Substance: AMOXICILLIN\CLAVULANIC ACID
     Indication: URINARY TRACT INFECTION
     Dosage: UNK
     Route: 065
  8. DIAZEPAM. [Suspect]
     Active Substance: DIAZEPAM
     Indication: PSYCHOTHERAPY
     Dosage: UNK
     Route: 065
  9. METHYLPREDNISOLONE. [Suspect]
     Active Substance: METHYLPREDNISOLONE
     Indication: ENCEPHALITIS AUTOIMMUNE
     Dosage: UNK
     Route: 065
  10. FLURAZEPAM [Suspect]
     Active Substance: FLURAZEPAM\FLURAZEPAM HYDROCHLORIDE
     Indication: PSYCHOTHERAPY
     Dosage: UNK
     Route: 065
  11. RISPERIDONE. [Suspect]
     Active Substance: RISPERIDONE
     Indication: PSYCHOTHERAPY
     Dosage: UNK
     Route: 065

REACTIONS (3)
  - Encephalitis autoimmune [Recovered/Resolved]
  - Ovarian germ cell teratoma [Recovered/Resolved]
  - Acute psychosis [Recovered/Resolved]
